FAERS Safety Report 24772452 (Version 1)
Quarter: 2024Q4

REPORT INFORMATION
  Report Type: Spontaneous
  Country: NL (occurrence: NL)
  Receive Date: 20241224
  Receipt Date: 20241224
  Transmission Date: 20250114
  Serious: Yes (Other)
  Sender: ASCEND THERAPEUTICS US, LLC
  Company Number: NL-Ascend Therapeutics US, LLC-2167688

PATIENT
  Age: 42 Year
  Sex: Female

DRUGS (6)
  1. ESTROGEL [Suspect]
     Active Substance: ESTRADIOL
     Indication: Menopausal symptoms
     Dates: start: 20231208
  2. ESTROGEL [Suspect]
     Active Substance: ESTRADIOL
     Indication: Menopausal depression
  3. ESTRADIOL [Suspect]
     Active Substance: ESTRADIOL
     Dates: start: 20231208
  4. UTROGESTAN [Suspect]
     Active Substance: PROGESTERONE
  5. ESTRADIOL [Suspect]
     Active Substance: ESTRADIOL
     Dates: start: 2024
  6. ESTRADIOL [Suspect]
     Active Substance: ESTRADIOL
     Dates: start: 2024, end: 2024

REACTIONS (7)
  - Suicidal ideation [Unknown]
  - Underdose [Unknown]
  - Incorrect dose administered by product [Unknown]
  - Drug delivery system malfunction [Unknown]
  - Therapeutic product effect decreased [Unknown]
  - Intentional product use issue [Unknown]
  - Depressive symptom [Unknown]

NARRATIVE: CASE EVENT DATE: 20240101
